FAERS Safety Report 22646985 (Version 1)
Quarter: 2023Q2

REPORT INFORMATION
  Report Type: Spontaneous
  Country: BR (occurrence: BR)
  Receive Date: 20230627
  Receipt Date: 20230627
  Transmission Date: 20230722
  Serious: Yes (Other)
  Sender: FDA-Public Use
  Company Number: BR-BAYER-2023A089133

PATIENT
  Age: 6 Year
  Sex: Female
  Weight: 40.95 kg

DRUGS (2)
  1. LAROTRECTINIB [Suspect]
     Active Substance: LAROTRECTINIB
     Indication: Congenital fibrosarcoma
     Dosage: UNK
     Dates: start: 201902
  2. LAROTRECTINIB [Suspect]
     Active Substance: LAROTRECTINIB
     Indication: Metastases to central nervous system

REACTIONS (18)
  - COVID-19 pneumonia [None]
  - Noninfective encephalitis [None]
  - Loss of consciousness [None]
  - Bradycardia [None]
  - Fatigue [None]
  - Weight increased [None]
  - Irritability [None]
  - Neurological decompensation [None]
  - Balance disorder [None]
  - Dysphagia [None]
  - Muscular weakness [None]
  - Mood altered [None]
  - Aggression [None]
  - Dropped head syndrome [None]
  - Asthenia [None]
  - Gait inability [None]
  - Tremor [None]
  - Somnolence [None]

NARRATIVE: CASE EVENT DATE: 20210101
